FAERS Safety Report 24631711 (Version 1)
Quarter: 2024Q4

REPORT INFORMATION
  Report Type: Spontaneous
  Country: CN (occurrence: CN)
  Receive Date: 20241118
  Receipt Date: 20241118
  Transmission Date: 20250114
  Serious: Yes (Other)
  Sender: SANOFI AVENTIS
  Company Number: CN-SA-2024SA328301

PATIENT
  Age: 60 Year
  Sex: Male
  Weight: 57.6 kg

DRUGS (11)
  1. THYMOGLOBULINE [Suspect]
     Active Substance: LAPINE T-LYMPHOCYTE IMMUNE GLOBULIN
     Indication: Aplastic anaemia
     Dosage: 25 MG, QID
     Route: 065
     Dates: start: 20240814, end: 20240817
  2. FLUDARABINE PHOSPHATE [Suspect]
     Active Substance: FLUDARABINE PHOSPHATE
     Indication: Aplastic anaemia
     Dosage: 50 MG, QD
     Route: 041
     Dates: start: 20240815, end: 20240819
  3. CYCLOSPORINE [Suspect]
     Active Substance: CYCLOSPORINE
     Indication: Aplastic anaemia
     Dosage: 40 MG, BID
     Route: 065
     Dates: start: 20240814, end: 20240819
  4. BUSULFEX [Concomitant]
     Active Substance: BUSULFAN
     Indication: Aplastic anaemia
     Dosage: 60 MG, QD
     Route: 041
     Dates: start: 20240818, end: 20240818
  5. CYCLOPHOSPHAMIDE [Concomitant]
     Active Substance: CYCLOPHOSPHAMIDE
     Indication: Aplastic anaemia
     Dosage: 1.4 G, QD
     Route: 041
     Dates: start: 20240818, end: 20240820
  6. MESNA [Concomitant]
     Active Substance: MESNA
     Indication: Aplastic anaemia
     Dosage: 0.8 G, QD
     Route: 041
     Dates: start: 20240818, end: 20240820
  7. SODIUM CHLORIDE [Concomitant]
     Active Substance: SODIUM CHLORIDE
     Indication: Vehicle solution use
     Dosage: 60 ML, QID WITH RABBIT ANTI-HUMAN THYMOCYTE IMMUNOGLOBULIN
     Dates: start: 20240814, end: 20240817
  8. SODIUM CHLORIDE [Concomitant]
     Active Substance: SODIUM CHLORIDE
     Dosage: 60 ML, Q12H WITH CICLOSPORIN INJECTION
     Dates: start: 20240814, end: 20240819
  9. SODIUM CHLORIDE [Concomitant]
     Active Substance: SODIUM CHLORIDE
     Dosage: 100 ML, QD WITH FLUDARABINE PHOSPHATE
     Route: 041
     Dates: start: 20240815, end: 20240819
  10. SODIUM CHLORIDE [Concomitant]
     Active Substance: SODIUM CHLORIDE
     Dosage: 250 ML, QD WITH BUSULFAN INJECTION
     Route: 041
     Dates: start: 20240818, end: 20240818
  11. SODIUM CHLORIDE [Concomitant]
     Active Substance: SODIUM CHLORIDE
     Dosage: 250 ML, QD WITH MESNA INJECTION AND CYCLOPHOSPHAMIDE
     Route: 041
     Dates: start: 20240818, end: 20240820

REACTIONS (9)
  - Cardiac failure [Recovering/Resolving]
  - Chest discomfort [Recovered/Resolved]
  - Tachypnoea [Recovered/Resolved]
  - Asthenia [Recovering/Resolving]
  - Diarrhoea [Recovering/Resolving]
  - Brain natriuretic peptide increased [Recovered/Resolved]
  - Blood creatinine increased [Recovered/Resolved]
  - Vomiting [Recovering/Resolving]
  - Inappropriate schedule of product administration [Unknown]

NARRATIVE: CASE EVENT DATE: 20240814
